FAERS Safety Report 7872052-8 (Version None)
Quarter: 2011Q4

REPORT INFORMATION
  Report Type: 
  Country: None (occurrence: None)
  Receive Date: 20111029
  Receipt Date: 20110314
  Transmission Date: 20120403
  Serious: No
  Sender: FDA-Public Use
  Company Number: US-AMGEN-USASP2011014098

PATIENT
  Age: 50 Year
  Sex: Male

DRUGS (1)
  1. ENBREL [Suspect]
     Indication: ANKYLOSING SPONDYLITIS
     Dosage: 50 MG, QWK
     Dates: start: 20110304

REACTIONS (6)
  - HEADACHE [None]
  - RHINORRHOEA [None]
  - INJECTION SITE HAEMATOMA [None]
  - PYREXIA [None]
  - COUGH [None]
  - RESPIRATORY TRACT CONGESTION [None]
